FAERS Safety Report 10236364 (Version 1)
Quarter: 2014Q2

REPORT INFORMATION
  Report Type: Spontaneous
  Country: IN (occurrence: IN)
  Receive Date: 20140613
  Receipt Date: 20140613
  Transmission Date: 20141212
  Serious: Yes (Other)
  Sender: FDA-Public Use
  Company Number: IN-WATSON-2014-13387

PATIENT
  Age: 50 Year
  Sex: Female

DRUGS (1)
  1. LIDOCAINE HYDROCHLORIDE 2% WITH EPINEPHRINE (WATSON LABORATORIES) [Suspect]
     Indication: LOCAL ANAESTHESIA
     Dosage: 2% LIDOCAINE TOGETHER WITH EPINEPHRINE1:200000
     Route: 065

REACTIONS (4)
  - VIth nerve paralysis [Recovered/Resolved]
  - Diplopia [Recovered/Resolved]
  - Eyelid ptosis [Recovered/Resolved]
  - Diplopia [Recovered/Resolved]
